FAERS Safety Report 10260878 (Version 1)
Quarter: 2014Q2

REPORT INFORMATION
  Report Type: Spontaneous
  Country: NL (occurrence: None)
  Receive Date: 20140623
  Receipt Date: 20140623
  Transmission Date: 20141212
  Serious: Yes (Other)
  Sender: FDA-Public Use
  Company Number: AXC-2014-000381

PATIENT
  Age: 34 Year
  Sex: Female

DRUGS (2)
  1. URSODEOXYCHOLIC ACID [Suspect]
     Indication: PRODUCT USED FOR UNKNOWN INDICATION
     Route: 048
  2. METHYLDOPA (METHYLDOPA) [Concomitant]

REACTIONS (6)
  - HELLP syndrome [None]
  - Umbilical cord abnormality [None]
  - Premature separation of placenta [None]
  - Maternal exposure during pregnancy [None]
  - Caesarean section [None]
  - Premature delivery [None]
